FAERS Safety Report 8312918-8 (Version None)
Quarter: 2012Q2

REPORT INFORMATION
  Report Type: 
  Country: None (occurrence: None)
  Receive Date: 20120426
  Receipt Date: 20120418
  Transmission Date: 20120825
  Serious: Yes (Hospitalization)
  Sender: FDA-Public Use
  Company Number: US-BAYER-2011-123807

PATIENT
  Age: 29 Year
  Sex: Female
  Weight: 61.224 kg

DRUGS (10)
  1. NAPROXEN [Concomitant]
     Dosage: 500 MG, UNK
  2. AMITRIPTYLINE HCL [Concomitant]
     Dosage: 10 MG, UNK
  3. AMBIEN [Concomitant]
     Dosage: UNK
     Dates: start: 20020101
  4. DROSPIRENONE AND ETHINYL ESTRADIOL [Suspect]
     Indication: CONTRACEPTION
     Dosage: UNK
     Dates: start: 20050101, end: 20100101
  5. ZOLPIDEM [Concomitant]
     Dosage: 10 MG, UNK
     Route: 048
  6. LIDOCAINE HCL VISCOUS [Concomitant]
     Dosage: 100 ML, UNK
     Route: 048
  7. ONDANSETRON [Concomitant]
     Dosage: 4 MG, QID
     Route: 048
  8. ACETAMINOPHEN W/ CODEINE [Concomitant]
     Dosage: TABLETS EVERY 4-6 HOURS AS NEEDED
     Route: 048
  9. YASMIN [Suspect]
     Indication: CONTRACEPTION
     Dosage: UNK
     Dates: start: 20050101, end: 20100101
  10. HYDROCHLOROTHIAZIDE [Concomitant]
     Dosage: UNK
     Dates: start: 20020101

REACTIONS (7)
  - ANXIETY [None]
  - EMOTIONAL DISTRESS [None]
  - GALLBLADDER DISORDER [None]
  - CHOLECYSTITIS CHRONIC [None]
  - VOMITING [None]
  - PAIN [None]
  - GENERAL PHYSICAL HEALTH DETERIORATION [None]
